FAERS Safety Report 17864194 (Version 1)
Quarter: 2020Q2

REPORT INFORMATION
  Report Type: Report from Study
  Country: US (occurrence: US)
  Receive Date: 20200605
  Receipt Date: 20200605
  Transmission Date: 20200714
  Serious: Yes (Hospitalization)
  Sender: FDA-Public Use
  Company Number: US-PFIZER INC-2020210145

PATIENT
  Sex: Male
  Weight: 64.5 kg

DRUGS (9)
  1. METHOTREXATE SODIUM. [Suspect]
     Active Substance: METHOTREXATE SODIUM
     Dosage: TOTAL DOSE ADMINISTERED THIS COURSE (DOSE): 75 MG
     Dates: start: 20191128, end: 20200420
  2. ONCASPAR [Suspect]
     Active Substance: PEGASPARGASE
     Dosage: TOTAL DOSE ADMINISTERED THIS COURSE (DOSE): 11250 UNIT
     Dates: start: 20191125, end: 20200421
  3. INOTUZUMAB OZOGAMICIN [Suspect]
     Active Substance: INOTUZUMAB OZOGAMICIN
     Dosage: TOTAL DOSE ADMINISTERED THIS COURSE (DOSE): 5.4 MG
     Dates: start: 20191231, end: 20200211
  4. MERCAPTOPURINE. [Suspect]
     Active Substance: MERCAPTOPURINE
     Dosage: TOTAL DOSE ADMINISTERED THIS COURSE (DOSE): 2900 MG
     Dates: start: 20200228, end: 20200420
  5. DAUNORUBICIN [Suspect]
     Active Substance: DAUNORUBICIN
     Dosage: TOTAL DOSE ADMINISTERED THIS COURSE (DOSE): 200 MG
     Dates: start: 20191121, end: 20191212
  6. DEXAMETHASONE. [Suspect]
     Active Substance: DEXAMETHASONE
     Dosage: TOTAL DOSE ADMINISTERED THIS COURSE (DOSE): 268.5 MG
     Dates: start: 20191121, end: 20191211
  7. CYTARABINE. [Suspect]
     Active Substance: CYTARABINE
     Dosage: TOTAL DOSE ADMINISTERED THIS COURSE (DOSE): 2422 MG
     Dates: start: 20191121, end: 20200417
  8. CYCLOPHOSPHAMIDE. [Suspect]
     Active Substance: CYCLOPHOSPHAMIDE
     Dosage: TOTAL DOSE ADMINISTERED THIS COURSE (DOSE): 3920 MG
     Dates: start: 20200228, end: 20200407
  9. VINCRISTINE SULFATE. [Suspect]
     Active Substance: VINCRISTINE SULFATE
     Dosage: TOTAL DOSE ADMINISTERED THIS COURSE (DOSE): 16 MG
     Dates: start: 20191121, end: 20200428

REACTIONS (1)
  - Febrile neutropenia [Recovered/Resolved]

NARRATIVE: CASE EVENT DATE: 20200503
